FAERS Safety Report 7712231-3 (Version None)
Quarter: 2011Q3

REPORT INFORMATION
  Report Type: 
  Country: None (occurrence: None)
  Receive Date: 20110826
  Receipt Date: 20110822
  Transmission Date: 20111222
  Serious: Yes (Hospitalization, Other)
  Sender: FDA-Public Use
  Company Number: FR-PFIZER INC-2011193453

PATIENT
  Age: 83 Year
  Sex: Male

DRUGS (8)
  1. XANAX [Suspect]
     Indication: DELIRIUM TREMENS
     Dosage: UNK
     Dates: start: 20110401, end: 20110401
  2. PREVISCAN [Concomitant]
  3. ASPEGIC 325 [Concomitant]
     Dosage: UNK
     Dates: start: 20110401, end: 20110401
  4. VITAMIN B1 AND B6 [Concomitant]
     Indication: HALLUCINATION
     Dosage: UNK
     Dates: start: 20110401
  5. ASPIRIN [Concomitant]
     Dosage: UNK
     Dates: start: 20110401
  6. PLAVIX [Concomitant]
  7. OXAZEPAM [Suspect]
     Indication: HALLUCINATION
     Dosage: UNK
     Dates: start: 20110401, end: 20110401
  8. LOVENOX [Concomitant]

REACTIONS (7)
  - FATIGUE [None]
  - CEREBROVASCULAR ACCIDENT [None]
  - COMA [None]
  - MALAISE [None]
  - DISORIENTATION [None]
  - HALLUCINATION [None]
  - SOMNOLENCE [None]
